FAERS Safety Report 15862547 (Version 1)
Quarter: 2019Q1

REPORT INFORMATION
  Report Type: Spontaneous
  Country: FR (occurrence: FR)
  Receive Date: 20190124
  Receipt Date: 20190124
  Transmission Date: 20190417
  Serious: Yes (Hospitalization)
  Sender: FDA-Public Use
  Company Number: FR-MYLANLABS-2019M1006304

PATIENT
  Age: 89 Year
  Sex: Female
  Weight: 54 kg

DRUGS (13)
  1. STAGID [Suspect]
     Active Substance: METFORMIN PAMOATE
     Indication: TYPE 2 DIABETES MELLITUS
     Dosage: 2100 MILLIGRAM, QD (1-1-1)
     Route: 048
     Dates: start: 201808
  2. SULFARLEM [Suspect]
     Active Substance: ANETHOLTRITHION
     Indication: APTYALISM
     Dosage: 150 MILLIGRAM, QD (2-2-2)
     Route: 048
     Dates: start: 201808
  3. ALPRAZOLAM. [Suspect]
     Active Substance: ALPRAZOLAM
     Indication: ANXIETY
     Dosage: 1 MILLIGRAM, QD (1-0.5-10.25MG)
     Route: 048
     Dates: start: 2016
  4. DOLIPRANE [Suspect]
     Active Substance: ACETAMINOPHEN
     Indication: PAIN
     Dosage: 4 GRAM, QD (2-2-2-2)
     Route: 048
     Dates: start: 2016
  5. BISOCE [Suspect]
     Active Substance: BISOPROLOL
     Indication: CARDIAC FAILURE
     Dosage: 2.5 MILLIGRAM, QD (1-0-0)
     Route: 048
     Dates: start: 2016
  6. LYSANXIA [Suspect]
     Active Substance: PRAZEPAM
     Indication: ANXIETY
     Dosage: 10 GTT DROPS, QD (5-0-5 GOUTTES)
     Route: 048
     Dates: start: 201808, end: 20181120
  7. LERCAN LERCANIDIPINE HYDROCHLORIDE 10MG TABLET BLISTER PACK [Suspect]
     Active Substance: LERCANIDIPINE HYDROCHLORIDE
     Indication: HYPERTENSION
     Dosage: 10 MILLIGRAM, QD (0-0-1)
     Route: 048
     Dates: start: 2016
  8. MYCOSTER                           /00619301/ [Suspect]
     Active Substance: CICLOPIROX\CICLOPIROX OLAMINE
     Indication: DERMATOPHYTOSIS
     Dosage: 1 DOSAGE FORM, QD (1/DAY ON THE NAILS)
     Route: 003
     Dates: start: 201808, end: 20181120
  9. LASILIX                            /00032601/ [Suspect]
     Active Substance: FUROSEMIDE
     Indication: HYPERTENSION
     Dosage: 40 MILLIGRAM, QD (1-0-0)
     Route: 048
     Dates: start: 2016
  10. MODOPAR [Suspect]
     Active Substance: BENSERAZIDE HYDROCHLORIDE\LEVODOPA
     Indication: PARKINSON^S DISEASE
     Dosage: 2 DOSAGE FORM, QD (1-0-1)
     Route: 048
     Dates: start: 2016, end: 20181122
  11. VITAMINE B12 AGUETTANT [Suspect]
     Active Substance: CYANOCOBALAMIN
     Indication: HYPOVITAMINOSIS
     Dosage: 1 DOSAGE FORM, QW (1-0-0)
     Route: 048
     Dates: start: 201808, end: 20181120
  12. ANAFRANIL [Suspect]
     Active Substance: CLOMIPRAMINE HYDROCHLORIDE
     Indication: DEPRESSION
     Dosage: 75 MILLIGRAM, QD
     Route: 048
     Dates: start: 2016
  13. LEVOTHYROX [Suspect]
     Active Substance: LEVOTHYROXINE
     Indication: HYPOTHYROIDISM
     Dosage: 50 MICROGRAM, QD (1-0-0)
     Route: 048
     Dates: start: 2016

REACTIONS (2)
  - General physical health deterioration [Not Recovered/Not Resolved]
  - Fall [Not Recovered/Not Resolved]

NARRATIVE: CASE EVENT DATE: 20181107
